FAERS Safety Report 6832778-1 (Version None)
Quarter: 2010Q3

REPORT INFORMATION
  Report Type: 
  Country: None (occurrence: None)
  Receive Date: 20100712
  Receipt Date: 20070319
  Transmission Date: 20110219
  Serious: No
  Sender: FDA-Public Use
  Company Number: US-PFIZER INC-2007024162

PATIENT
  Sex: Male
  Weight: 92.53 kg

DRUGS (7)
  1. CHANTIX [Suspect]
     Indication: SMOKING CESSATION THERAPY
     Dates: start: 20070301
  2. OLANZAPINE [Concomitant]
  3. PERPHENAZINE [Concomitant]
  4. CELEXA [Concomitant]
  5. KLONOPIN [Concomitant]
  6. TEMAZEPAM [Concomitant]
  7. TOPIRAMATE [Concomitant]

REACTIONS (4)
  - FEAR [None]
  - FEELING ABNORMAL [None]
  - MUSCULAR WEAKNESS [None]
  - OSTEOARTHRITIS [None]
